FAERS Safety Report 6235727-2 (Version None)
Quarter: 2009Q2

REPORT INFORMATION
  Report Type: 
  Country: None (occurrence: None)
  Receive Date: 20090619
  Receipt Date: 20070530
  Transmission Date: 20091009
  Serious: Yes (Other)
  Sender: FDA-Public Use
  Company Number: US-ASTRAZENECA-2006UW07851

PATIENT
  Age: 14285 Day
  Sex: Female
  Weight: 104.3 kg

DRUGS (58)
  1. SEROQUEL [Suspect]
     Indication: DEPRESSION
     Route: 048
     Dates: start: 20010101, end: 20050101
  2. SEROQUEL [Suspect]
     Indication: FEELING OF RELAXATION
     Route: 048
     Dates: start: 20010101, end: 20050101
  3. SEROQUEL [Suspect]
     Indication: SLEEP DISORDER
     Route: 048
     Dates: start: 20010101, end: 20050101
  4. SEROQUEL [Suspect]
     Dosage: 25-300 MG, 100 MG EVERY 2 HOURS AS NEEDED
     Route: 048
     Dates: start: 20030103, end: 20040101
  5. SEROQUEL [Suspect]
     Dosage: 25-300 MG, 100 MG EVERY 2 HOURS AS NEEDED
     Route: 048
     Dates: start: 20030103, end: 20040101
  6. SEROQUEL [Suspect]
     Dosage: 25-300 MG, 100 MG EVERY 2 HOURS AS NEEDED
     Route: 048
     Dates: start: 20030103, end: 20040101
  7. SEROQUEL [Suspect]
     Dosage: 25-100 MG
     Route: 048
     Dates: start: 20040114
  8. SEROQUEL [Suspect]
     Dosage: 25-100 MG
     Route: 048
     Dates: start: 20040114
  9. SEROQUEL [Suspect]
     Dosage: 25-100 MG
     Route: 048
     Dates: start: 20040114
  10. EFFEXOR [Concomitant]
     Indication: DEPRESSION
     Dosage: 75-300 MG
     Route: 048
     Dates: start: 20010214, end: 20070117
  11. CELEXA [Concomitant]
     Indication: DEPRESSION
     Dosage: 20-60 MG
     Route: 048
     Dates: start: 20030430
  12. ZYRTEC [Concomitant]
     Indication: SEASONAL ALLERGY
     Route: 048
     Dates: start: 19980928
  13. FLEXERIL [Concomitant]
     Indication: BACK PAIN
     Dosage: 10-30 MG AND AS NEEDED
     Route: 048
     Dates: start: 20030423
  14. IBUPROFEN [Concomitant]
     Indication: BACK PAIN
     Dosage: 600-1600 MG
     Route: 048
     Dates: start: 19961222
  15. IBUPROFEN [Concomitant]
     Indication: HEADACHE
     Dosage: 600-1600 MG
     Route: 048
     Dates: start: 19961222
  16. ALLEGRA [Concomitant]
     Indication: HYPERSENSITIVITY
     Dosage: 60-120 MG
     Dates: start: 20010610
  17. AMBIEN [Concomitant]
     Indication: SLEEP DISORDER
     Dosage: 5 MG, 1 OR 2 TABLETS , 4 DOSES IN 24 HOURS AS NEEDED
     Route: 048
     Dates: start: 20010220, end: 20070117
  18. AMBIEN [Concomitant]
     Indication: DEPRESSION
     Dosage: 5 MG, 1 OR 2 TABLETS , 4 DOSES IN 24 HOURS AS NEEDED
     Route: 048
     Dates: start: 20010220, end: 20070117
  19. VICODIN [Concomitant]
     Indication: BACK PAIN
     Dosage: 10-325 MG
     Route: 048
     Dates: start: 19991228
  20. TRAZODONE HCL [Concomitant]
     Route: 048
     Dates: start: 19980928, end: 20070117
  21. METFORMIN HYDROCHLORIDE [Concomitant]
     Indication: DIABETES MELLITUS
     Route: 048
     Dates: start: 20050328
  22. ASPIRIN [Concomitant]
     Route: 048
     Dates: start: 20050804
  23. LISINOPRIL [Concomitant]
     Route: 048
     Dates: start: 20050718
  24. TYLENOL (CAPLET) [Concomitant]
     Indication: SLEEP DISORDER
     Dosage: 325 MG, 500 MG
     Route: 048
     Dates: start: 19961222
  25. METHOCARBAMOL [Concomitant]
     Route: 048
     Dates: start: 20010821
  26. DARVOCET-N 100 [Concomitant]
     Indication: BACK PAIN
     Dosage: 100-650 MG, 4-6 HOURS AS NEEDED
     Route: 048
     Dates: start: 20000807
  27. DARVOCET-N 100 [Concomitant]
     Indication: PAIN
     Dosage: 100-650 MG, 4-6 HOURS AS NEEDED
     Route: 048
     Dates: start: 20000807
  28. AZMACORT [Concomitant]
     Dosage: 20 GMS, 2 PUFFS TWICE DAILY
     Dates: start: 20010130
  29. ALBUTEROL [Concomitant]
     Dosage: 90 MCG/ACT, 2 PUFFS FOUR TIMES A DAY, 0.83 PERCENT
     Dates: start: 20010925
  30. IMITREX [Concomitant]
     Dates: start: 20030617
  31. NASONEX [Concomitant]
     Dosage: 50 MCG, TWO SPRAYS EACH NOSTRIL DAILY
     Route: 045
     Dates: start: 20010522
  32. REMERON [Concomitant]
     Dosage: 7.5-75 MG
     Dates: start: 20010214
  33. ZOLOFT [Concomitant]
     Indication: DEPRESSION
     Dates: start: 19980928
  34. VALIUM [Concomitant]
     Dosage: 5-10 MG
     Route: 048
     Dates: start: 20041017, end: 20041111
  35. TESTOSTERONE [Concomitant]
     Dates: start: 20060620
  36. OXYCODONE HCL [Concomitant]
     Dosage: 5-30 MG AS NEEDED
     Route: 048
     Dates: start: 20060120, end: 20070117
  37. ATIVAN [Concomitant]
     Dosage: 1-2 MG EVERY 2 HOURS AS NEEDED
     Route: 048
     Dates: start: 20030130
  38. MILK OF MAGNESIA TAB [Concomitant]
     Dosage: 30 ML, ONCE DAILY AS NEEDED
     Route: 048
     Dates: start: 20030130
  39. MAALOX [Concomitant]
     Dosage: 10-20 ML, EVERY 6 HOURS AS NEEDED
     Route: 048
     Dates: start: 20030130
  40. BENZONATATE [Concomitant]
     Indication: COUGH
     Dosage: 100-300 MG AS NEEDED
     Dates: start: 20040502
  41. PREDNISONE [Concomitant]
     Dosage: 40-60 MG
     Route: 048
     Dates: start: 20010818
  42. ACETAMINOPHEN W/ CODEINE [Concomitant]
     Indication: PAIN
     Dosage: 1-2 TABLETS, EVERY 6 HOURS AS NEEDED
     Route: 048
     Dates: start: 19961222
  43. TRIAZOLAM [Concomitant]
     Dosage: 0.125 MG, 4 HOURS AS NEEDED
     Dates: start: 20030130
  44. TEMAZEPAM [Concomitant]
     Dosage: 15-30 MG
     Route: 048
     Dates: start: 20030430
  45. LORATADINE [Concomitant]
     Route: 048
     Dates: start: 20030130
  46. BENADRYL [Concomitant]
     Dosage: 25-50 MG
     Route: 030
     Dates: start: 20030130
  47. PANTOPRAZOLE SODIUM [Concomitant]
     Dates: start: 20070303
  48. PROZAC [Concomitant]
     Indication: DEPRESSION
     Route: 048
     Dates: start: 20061108
  49. ZYPREXA [Concomitant]
     Dates: start: 20041217
  50. DULOXETINE HYDROCHLORIDE [Concomitant]
     Dosage: 30-60 MG
     Route: 048
     Dates: start: 20070308
  51. EXCEDRIN (MIGRAINE) [Concomitant]
     Dates: start: 20061022
  52. PERCOCET [Concomitant]
     Indication: PAIN
     Dosage: 5/325, 1 OR 2 TABLETS AS NEEDED
     Route: 048
     Dates: start: 20050303
  53. METOCLOPRAMIDE [Concomitant]
     Dates: start: 20070308
  54. MECLIZINE HCL [Concomitant]
     Dosage: 25-75 MG
     Route: 048
     Dates: start: 20041229
  55. BECONASE [Concomitant]
     Dates: start: 19980928
  56. BETAMETHASONE VALERATE [Concomitant]
     Indication: DERMATITIS
     Dosage: 0.1 PERCENT TWICE DAILY
     Dates: start: 20050221
  57. NEURONTIN [Concomitant]
     Route: 048
     Dates: start: 20061109, end: 20070117
  58. GUAIFENESIN AC [Concomitant]
     Dosage: 100-10 MG/5 ML
     Route: 048
     Dates: start: 20050328, end: 20061108

REACTIONS (6)
  - DIABETES MELLITUS [None]
  - DIABETES MELLITUS INADEQUATE CONTROL [None]
  - DIABETIC NEPHROPATHY [None]
  - GLUCOSE TOLERANCE IMPAIRED [None]
  - HYPOGLYCAEMIA [None]
  - TYPE 2 DIABETES MELLITUS [None]
